FAERS Safety Report 19427975 (Version 1)
Quarter: 2021Q2

REPORT INFORMATION
  Report Type: Spontaneous
  Country: NL (occurrence: NL)
  Receive Date: 20210617
  Receipt Date: 20210617
  Transmission Date: 20210717
  Serious: Yes (Life-Threatening, Hospitalization)
  Sender: FDA-Public Use
  Company Number: NVSC2021NL096067

PATIENT
  Age: 49 Year
  Sex: Female
  Weight: 85 kg

DRUGS (4)
  1. SALBUTAMOL [Suspect]
     Active Substance: ALBUTEROL
     Indication: ASTHMA
  2. SALBUTAMOL [Suspect]
     Active Substance: ALBUTEROL
     Indication: DYSPNOEA
     Dosage: UNK UNK, QID (INHALER)
     Route: 065
     Dates: start: 20210301
  3. SALBUTAMOL [Suspect]
     Active Substance: ALBUTEROL
     Indication: HYPERSENSITIVITY
  4. PREDNISONE. [Suspect]
     Active Substance: PREDNISONE
     Indication: DYSPNOEA
     Route: 065

REACTIONS (10)
  - Hypersensitivity [Not Recovered/Not Resolved]
  - Oxygen saturation decreased [Recovering/Resolving]
  - Dyspnoea [Unknown]
  - Respiratory tract irritation [Unknown]
  - Drug ineffective [Not Recovered/Not Resolved]
  - Asthma [Not Recovered/Not Resolved]
  - Device malfunction [Unknown]
  - Somatic symptom disorder [Unknown]
  - General physical health deterioration [Unknown]
  - Bronchitis [Unknown]

NARRATIVE: CASE EVENT DATE: 202103
